FAERS Safety Report 7240314-3 (Version None)
Quarter: 2011Q1

REPORT INFORMATION
  Report Type: 
  Country: None (occurrence: None)
  Receive Date: 20110120
  Receipt Date: 20110120
  Transmission Date: 20110831
  Serious: No
  Sender: FDA-Public Use
  Company Number: None

PATIENT
  Age: 61 Year
  Sex: Female
  Weight: 68.0396 kg

DRUGS (1)
  1. NIACIN [Suspect]
     Indication: HYPERTENSION
     Dosage: ONE ONE A DAY

REACTIONS (3)
  - FLUSHING [None]
  - DYSPNOEA [None]
  - SKIN BURNING SENSATION [None]
